FAERS Safety Report 19442380 (Version 1)
Quarter: 2021Q2

REPORT INFORMATION
  Report Type: Other
  Country: US (occurrence: US)
  Receive Date: 20210621
  Receipt Date: 20210621
  Transmission Date: 20210717
  Serious: Yes (Other)
  Sender: FDA-Public Use
  Company Number: US-ACORDA-ACO_168800_2021

PATIENT
  Age: 71 Year
  Sex: Male

DRUGS (4)
  1. INBRIJA [Suspect]
     Active Substance: LEVODOPA
     Indication: ON AND OFF PHENOMENON
     Dosage: 84 MILLIGRAM, AS NEEDED, NOT TO EXCEED 5 DOSES PER DAY
     Dates: start: 20200106
  2. INBRIJA [Suspect]
     Active Substance: LEVODOPA
     Indication: PARKINSON^S DISEASE
  3. CARBIDOPA/LEVODOPA [Concomitant]
     Active Substance: CARBIDOPA\LEVODOPA
     Dosage: 200MG CAPSULE EVERY 4 HOURS
     Route: 048
  4. CARBIDOPA/LEVODOPA [Concomitant]
     Active Substance: CARBIDOPA\LEVODOPA
     Indication: PRODUCT USED FOR UNKNOWN INDICATION
     Dosage: 25/100MG TABLET
     Route: 048

REACTIONS (10)
  - Leukaemia [Not Recovered/Not Resolved]
  - Inappropriate schedule of product administration [Unknown]
  - Device difficult to use [Unknown]
  - Therapeutic product effect incomplete [Unknown]
  - Panic reaction [Not Recovered/Not Resolved]
  - Hunger [Not Recovered/Not Resolved]
  - Feeding disorder [Not Recovered/Not Resolved]
  - Respiratory disorder [Unknown]
  - Product communication issue [Unknown]
  - Pain [Unknown]

NARRATIVE: CASE EVENT DATE: 20210616
